FAERS Safety Report 4969352-8 (Version None)
Quarter: 2006Q2

REPORT INFORMATION
  Report Type: 
  Country: None (occurrence: None)
  Receive Date: 20060405
  Receipt Date: 20060327
  Transmission Date: 20061013
  Serious: Yes (Hospitalization, Disabling, Other)
  Sender: FDA-Public Use
  Company Number: 2006042691

PATIENT
  Age: 78 Year

DRUGS (3)
  1. LIPITOR [Suspect]
     Indication: BLOOD CHOLESTEROL
  2. VYTORIN [Suspect]
     Indication: ILL-DEFINED DISORDER
  3. ZETIA [Concomitant]

REACTIONS (7)
  - ABASIA [None]
  - DRUG TOXICITY [None]
  - DYSPNOEA [None]
  - FATIGUE [None]
  - MUSCLE DISORDER [None]
  - MYALGIA [None]
  - WALKING AID USER [None]
